FAERS Safety Report 6254864-X (Version None)
Quarter: 2009Q2

REPORT INFORMATION
  Report Type: 
  Country: None (occurrence: None)
  Receive Date: 20090630
  Receipt Date: 20090622
  Transmission Date: 20091009
  Serious: Yes (Death, Other)
  Sender: FDA-Public Use
  Company Number: GRT 2008-12620 (FOLLOW-UP #2)

PATIENT
  Sex: Female

DRUGS (1)
  1. LIDOCAINE [Suspect]
     Indication: POST HERPETIC NEURALGIA

REACTIONS (1)
  - CARDIAC FAILURE [None]
